FAERS Safety Report 8112730-9 (Version None)
Quarter: 2012Q1

REPORT INFORMATION
  Report Type: 
  Country: None (occurrence: None)
  Receive Date: 20120203
  Receipt Date: 20120112
  Transmission Date: 20120608
  Serious: Yes (Hospitalization)
  Sender: FDA-Public Use
  Company Number: US-ROCHE-1015444

PATIENT
  Sex: Male
  Weight: 78.9 kg

DRUGS (18)
  1. ASPIRIN [Concomitant]
     Indication: PROPHYLAXIS
     Route: 048
     Dates: start: 20000101
  2. COUMADIN [Concomitant]
     Indication: ATRIAL FIBRILLATION
     Route: 048
     Dates: start: 20111025, end: 20111102
  3. DIGOXIN [Concomitant]
     Indication: ATRIAL FIBRILLATION
     Route: 048
     Dates: start: 20111024
  4. OMEPRAZOLE [Concomitant]
     Indication: GASTROOESOPHAGEAL REFLUX DISEASE
     Route: 048
     Dates: start: 20111010, end: 20111102
  5. JANUMET [Concomitant]
     Indication: DIABETES MELLITUS
     Dates: start: 20000101
  6. HUMIRA [Concomitant]
     Indication: ARTHRITIS
     Route: 048
     Dates: start: 20000101
  7. NIFEDIPINE [Concomitant]
     Indication: HYPERTENSION
     Route: 048
     Dates: start: 20000101
  8. VYTORIN [Concomitant]
     Indication: BLOOD CHOLESTEROL INCREASED
     Dosage: TDD: 10 TO 40 TAB
     Route: 048
     Dates: start: 20000101
  9. HERBAL SUPPLEMENT [Concomitant]
     Route: 048
     Dates: start: 20000101
  10. NEXIUM [Concomitant]
     Indication: ULCER
     Route: 048
     Dates: start: 20111024
  11. ALBUTEROL [Concomitant]
     Indication: ASTHMA
     Dosage: TDD: 2 PUFFS
  12. RANIBIZUMAB [Suspect]
     Indication: DIABETIC RETINAL OEDEMA
     Dosage: FREQUENCY: PRN
     Route: 050
     Dates: start: 20110606
  13. IRON COMPLEX [Concomitant]
     Route: 048
     Dates: start: 20090101
  14. METHOTREXATE [Concomitant]
     Indication: ARTHRITIS
     Route: 048
     Dates: start: 19950101
  15. COZAAR [Concomitant]
     Indication: HYPERTENSION
     Route: 048
     Dates: start: 20000101, end: 20110705
  16. LEVOXYL [Concomitant]
     Indication: HYPOTHYROIDISM
     Route: 048
     Dates: start: 20000101
  17. FLAXSEED OIL [Concomitant]
     Route: 048
     Dates: start: 20060101
  18. ENZYME TABLET [Concomitant]
     Route: 048
     Dates: start: 20000101

REACTIONS (1)
  - ARTERIOVENOUS MALFORMATION [None]
